FAERS Safety Report 23469054 (Version 1)
Quarter: 2024Q1

REPORT INFORMATION
  Report Type: Spontaneous
  Country: US (occurrence: None)
  Receive Date: 20240202
  Receipt Date: 20240202
  Transmission Date: 20240410
  Serious: Yes (Death, Other)
  Sender: FDA-Public Use
  Company Number: US-ADIENNEP-2024AD000090

PATIENT
  Sex: Female

DRUGS (5)
  1. THIOTEPA [Suspect]
     Active Substance: THIOTEPA
     Indication: Allogenic stem cell transplantation
  2. CAMPATH [Suspect]
     Active Substance: ALEMTUZUMAB
     Indication: Allogenic stem cell transplantation
  3. MELPHALAN [Suspect]
     Active Substance: MELPHALAN
     Indication: Allogenic stem cell transplantation
  4. FLUDARABINE [Suspect]
     Active Substance: FLUDARABINE PHOSPHATE
     Indication: Allogenic stem cell transplantation
  5. ANAKINRA [Suspect]
     Active Substance: ANAKINRA

REACTIONS (13)
  - Acute graft versus host disease in skin [Unknown]
  - Acute graft versus host disease in intestine [Unknown]
  - Posterior reversible encephalopathy syndrome [Unknown]
  - Thrombotic microangiopathy [Fatal]
  - Pneumonia cytomegaloviral [Unknown]
  - Viraemia [Unknown]
  - Renal necrosis [Fatal]
  - Diffuse alveolar damage [Fatal]
  - Pulmonary haemorrhage [Fatal]
  - Gastrointestinal necrosis [Fatal]
  - Necrosis ischaemic [Fatal]
  - Cardiopulmonary failure [Fatal]
  - Renal impairment [Fatal]
